FAERS Safety Report 23253096 (Version 1)
Quarter: 2023Q4

REPORT INFORMATION
  Report Type: Spontaneous
  Country: IN (occurrence: IN)
  Receive Date: 20231201
  Receipt Date: 20231201
  Transmission Date: 20240110
  Serious: Yes (Other)
  Sender: FDA-Public Use
  Company Number: IN-FDC-2023INLIT00898

PATIENT
  Age: 65 Year
  Sex: Female

DRUGS (1)
  1. CIPROFLOXACIN [Suspect]
     Active Substance: CIPROFLOXACIN
     Indication: Otitis media
     Route: 065

REACTIONS (2)
  - Erythema multiforme [Unknown]
  - Product use in unapproved indication [Unknown]
